FAERS Safety Report 4721873-9 (Version None)
Quarter: 2005Q3

REPORT INFORMATION
  Report Type: 
  Country: None (occurrence: None)
  Receive Date: 20050721
  Receipt Date: 20050523
  Transmission Date: 20060218
  Serious: Yes (Other)
  Sender: FDA-Public Use
  Company Number: US-BRISTOL-MYERS SQUIBB COMPANY-12978391

PATIENT
  Age: 59 Year
  Sex: Male
  Weight: 154 kg

DRUGS (7)
  1. COUMADIN [Suspect]
     Indication: ATRIAL FIBRILLATION
     Dosage: STARTED APPROXIMATELY 3 WEEKS AGO; DRUG HELD; NO DRUG SINCE 14-MAY-2005.
     Route: 048
     Dates: start: 20050501
  2. ASPIRIN [Suspect]
  3. IRON [Concomitant]
  4. ACCUPRIL [Concomitant]
  5. ASCORBIC ACID [Concomitant]
  6. LASIX [Concomitant]
  7. INSULIN [Concomitant]

REACTIONS (1)
  - HAEMORRHAGE [None]
